FAERS Safety Report 19423589 (Version 1)
Quarter: 2021Q2

REPORT INFORMATION
  Report Type: Report from Study
  Country: US (occurrence: US)
  Receive Date: 20210616
  Receipt Date: 20210616
  Transmission Date: 20210717
  Serious: Yes (Other)
  Sender: FDA-Public Use
  Company Number: US-PFIZER INC-2021707756

PATIENT

DRUGS (14)
  1. TOPOTECAN HYDROCHLORIDE. [Suspect]
     Active Substance: TOPOTECAN HYDROCHLORIDE
     Indication: NEUROBLASTOMA
     Dosage: 1.2MG/M2/DOSE X 5 DAYS UNKNOWN ROUTE
  2. CYCLOPHOSPHAMIDE. [Suspect]
     Active Substance: CYCLOPHOSPHAMIDE
     Dosage: 2100 MG/M2/DOSE X 2 DAYS
  3. IOBENGUANE (I131) [Suspect]
     Active Substance: IOBENGUANE I-131
     Indication: NEUROBLASTOMA
     Dosage: 18 MCI/KG
  4. BUSULFAN. [Suspect]
     Active Substance: BUSULFAN
     Indication: NEUROBLASTOMA
     Dosage: UNK, CYCLIC, (EVERY SIX HOURS FOR 16 DOSES FROM DAY ?6 TO DAY ?3)
     Route: 042
  5. DOXORUBICIN HCL [Suspect]
     Active Substance: DOXORUBICIN HYDROCHLORIDE
     Indication: NEUROBLASTOMA
     Dosage: 25 MG/M2/DOSE X 3 DAYS
  6. VINCRISTINE SULFATE. [Suspect]
     Active Substance: VINCRISTINE SULFATE
     Dosage: 2 MG/M2/DOSE X 1 DAY MAX 2MG
  7. ETOPOSIDE. [Suspect]
     Active Substance: ETOPOSIDE
     Indication: NEUROBLASTOMA
     Dosage: 400 MG/M2/DOSE X 5 DAYS (EACH CYCLE LASTING 21 DAYS ASSUMING BLOOD COUNT RECOVERY)
  8. MELPHALAN. [Suspect]
     Active Substance: MELPHALAN
     Indication: NEUROBLASTOMA
     Dosage: 140 MG/M2, CYCLIC (ON DAY?1)
  9. ETOPOSIDE. [Suspect]
     Active Substance: ETOPOSIDE
     Dosage: 2100 MG/M2/DOSE X 2 DAYS
  10. CISPLATIN. [Suspect]
     Active Substance: CISPLATIN
     Dosage: CYCLE 5 CYCLIC
  11. CYCLOPHOSPHAMIDE. [Suspect]
     Active Substance: CYCLOPHOSPHAMIDE
     Indication: NEUROBLASTOMA
     Dosage: 400 MG/M2/DOSE X 5 DAYS (EACH CYCLE LASTING 21 DAYS ASSUMING BLOOD COUNT RECOVERY)
  12. IRINOTECAN HCL [Suspect]
     Active Substance: IRINOTECAN HYDROCHLORIDE
     Indication: NEUROBLASTOMA
     Dosage: 50 MG/M2, CYCLIC
  13. VINCRISTINE SULFATE. [Suspect]
     Active Substance: VINCRISTINE SULFATE
     Indication: NEUROBLASTOMA
     Dosage: LOWER DOSE OF 0.67MG/M2/DOSE OR 0.022 MG/KG/DOSE X 3 DAYS
  14. CISPLATIN. [Suspect]
     Active Substance: CISPLATIN
     Indication: NEUROBLASTOMA
     Dosage: 50 MG/M2/DOSE X 4 DAYS

REACTIONS (1)
  - Venoocclusive liver disease [Unknown]
